FAERS Safety Report 9475195 (Version 1)
Quarter: 2013Q3

REPORT INFORMATION
  Report Type: Spontaneous
  Country: TR (occurrence: TR)
  Receive Date: 20130825
  Receipt Date: 20130825
  Transmission Date: 20140515
  Serious: Yes (Other)
  Sender: FDA-Public Use
  Company Number: PHHY2013TR089104

PATIENT
  Age: 36 Year
  Sex: Female

DRUGS (1)
  1. METOPROLOL [Suspect]
     Indication: SINUS TACHYCARDIA
     Dosage: 12.5 MG PER DAY

REACTIONS (2)
  - Drug intolerance [Recovered/Resolved]
  - Dyspnoea [Unknown]
